FAERS Safety Report 5656568-0 (Version None)
Quarter: 2008Q1

REPORT INFORMATION
  Report Type: 
  Country: None (occurrence: None)
  Receive Date: 20080306
  Receipt Date: 20080306
  Transmission Date: 20080703
  Serious: Yes (Other)
  Sender: FDA-Public Use
  Company Number: None

PATIENT
  Age: 49 Year
  Sex: Female
  Weight: 65.318 kg

DRUGS (1)
  1. GADOLINIUM [Suspect]
     Indication: TINNITUS
     Dates: start: 20080227, end: 20080227

REACTIONS (6)
  - BLOOD PRESSURE INCREASED [None]
  - FEELING ABNORMAL [None]
  - HEADACHE [None]
  - PITTING OEDEMA [None]
  - RASH ERYTHEMATOUS [None]
  - STRESS [None]
